FAERS Safety Report 21616632 (Version 2)
Quarter: 2023Q2

REPORT INFORMATION
  Report Type: Spontaneous
  Country: US (occurrence: US)
  Receive Date: 20221118
  Receipt Date: 20230502
  Transmission Date: 20230722
  Serious: Yes (Hospitalization)
  Sender: FDA-Public Use
  Company Number: US-SA-SAC20221115000170

PATIENT
  Age: 58 Year
  Sex: Male

DRUGS (1)
  1. CAPRELSA [Suspect]
     Active Substance: VANDETANIB
     Indication: Thyroid cancer
     Dosage: 300 MG, QD
     Route: 048
     Dates: start: 20221022

REACTIONS (6)
  - Hospitalisation [Unknown]
  - Swelling [Unknown]
  - Gait disturbance [Unknown]
  - White blood cell count decreased [Unknown]
  - Diarrhoea [Unknown]
  - Chest wall operation [Unknown]
